FAERS Safety Report 22208161 (Version 3)
Quarter: 2023Q2

REPORT INFORMATION
  Report Type: Report from Study
  Country: KR (occurrence: KR)
  Receive Date: 20230413
  Receipt Date: 20230619
  Transmission Date: 20230722
  Serious: Yes (Other)
  Sender: FDA-Public Use
  Company Number: KR-002147023-NVSC2023KR083999

PATIENT
  Age: 85 Year
  Sex: Male

DRUGS (13)
  1. BEOVU [Suspect]
     Active Substance: BROLUCIZUMAB-DBLL
     Indication: Neovascular age-related macular degeneration
     Dosage: 6 MG
     Route: 031
     Dates: start: 20211112, end: 20211112
  2. BEOVU [Suspect]
     Active Substance: BROLUCIZUMAB-DBLL
     Dosage: 6 MG
     Route: 031
     Dates: start: 20211213, end: 20211213
  3. LEVOFLOXACIN [Concomitant]
     Active Substance: LEVOFLOXACIN
     Indication: Evidence based treatment
     Dosage: 1 DRP, 6, TID (STRENGTH: 1.5)
     Route: 047
     Dates: start: 20211112, end: 20211118
  4. NEVERPENTIN [Concomitant]
     Indication: Parkinson^s disease
     Dosage: UNK
     Route: 065
     Dates: start: 201101
  5. RIVOTRIL [Concomitant]
     Active Substance: CLONAZEPAM
     Indication: Parkinson^s disease
     Dosage: UNK
     Route: 065
     Dates: start: 201101
  6. TRILEVO [Concomitant]
     Indication: Parkinson^s disease
     Dosage: UNK
     Route: 065
     Dates: start: 201101
  7. DIMENHYDRINATE [Concomitant]
     Active Substance: DIMENHYDRINATE
     Indication: Prophylaxis
     Dosage: UNK
     Route: 065
     Dates: start: 201101
  8. STILLEN [Concomitant]
     Indication: Prophylaxis
     Dosage: UNK (2X)
     Route: 065
     Dates: start: 200101
  9. CLOPIDOGREL BISULFATE [Concomitant]
     Active Substance: CLOPIDOGREL BISULFATE
     Indication: Angina pectoris
     Dosage: UNK
     Route: 065
     Dates: start: 200101
  10. RISELTON [Concomitant]
     Indication: Parkinson^s disease
     Dosage: UNK
     Route: 065
     Dates: start: 201101
  11. EDPA [Concomitant]
     Indication: Parkinson^s disease
     Dosage: UNK
     Route: 065
     Dates: start: 201101
  12. XANAX [Concomitant]
     Active Substance: ALPRAZOLAM
     Indication: Parkinson^s disease
     Dosage: UNK
     Route: 065
     Dates: start: 201101
  13. FUMELON [Concomitant]
     Indication: Eye disorder prophylaxis
     Dosage: UNK
     Route: 065
     Dates: start: 20220103

REACTIONS (1)
  - Idiopathic orbital inflammation [Recovered/Resolved]

NARRATIVE: CASE EVENT DATE: 20211215
